FAERS Safety Report 8294522-3 (Version None)
Quarter: 2012Q2

REPORT INFORMATION
  Report Type: 
  Country: None (occurrence: None)
  Receive Date: 20120418
  Receipt Date: 20120409
  Transmission Date: 20120825
  Serious: Yes (Hospitalization, Other)
  Sender: FDA-Public Use
  Company Number: US-ASTRAZENECA-2012SE00599

PATIENT
  Age: 57 Year
  Sex: Female
  Weight: 88.5 kg

DRUGS (6)
  1. SEROQUEL [Suspect]
     Route: 048
     Dates: start: 20070101
  2. SEROQUEL [Suspect]
     Route: 048
  3. SEROQUEL [Suspect]
     Indication: DEPRESSION
     Route: 048
     Dates: start: 20070110
  4. SEROQUEL [Suspect]
     Route: 048
  5. LEXAPRO [Concomitant]
     Indication: DEPRESSION
     Route: 048
     Dates: start: 20070418
  6. GEODON [Concomitant]
     Indication: MOOD ALTERED
     Route: 048
     Dates: start: 20100401, end: 20110501

REACTIONS (6)
  - EJECTION FRACTION DECREASED [None]
  - HYPERGLYCAEMIA [None]
  - SINUS BRADYCARDIA [None]
  - ACUTE MYOCARDIAL INFARCTION [None]
  - CORONARY ARTERY DISEASE [None]
  - HYPOTENSION [None]
